FAERS Safety Report 4971558-9 (Version None)
Quarter: 2006Q2

REPORT INFORMATION
  Report Type: 
  Country: None (occurrence: None)
  Receive Date: 20060413
  Receipt Date: 20060405
  Transmission Date: 20061013
  Serious: Yes (Disabling)
  Sender: FDA-Public Use
  Company Number: CA-AVENTIS-200613792GDDC

PATIENT
  Sex: Male

DRUGS (2)
  1. FLAGYL [Suspect]
     Dosage: DOSE: UNK
  2. UNKNOWN DRUG [Concomitant]

REACTIONS (1)
  - NEUROPATHY PERIPHERAL [None]
